FAERS Safety Report 17351914 (Version 2)
Quarter: 2020Q1

REPORT INFORMATION
  Report Type: Spontaneous
  Country: US (occurrence: US)
  Receive Date: 20200130
  Receipt Date: 20200229
  Transmission Date: 20200409
  Serious: Yes (Hospitalization)
  Sender: FDA-Public Use
  Company Number: US-TEVA-2020-US-1175596

PATIENT
  Age: 72 Year
  Sex: Female

DRUGS (2)
  1. ENOXAPARIN-SODIUM [Suspect]
     Active Substance: ENOXAPARIN SODIUM
     Indication: DEEP VEIN THROMBOSIS
     Route: 065
  2. BEVACIZUMAB. [Suspect]
     Active Substance: BEVACIZUMAB
     Indication: OVARIAN CANCER METASTATIC
     Route: 065

REACTIONS (2)
  - Vascular pseudoaneurysm [Recovered/Resolved]
  - Pulmonary vascular disorder [Recovered/Resolved]
